FAERS Safety Report 20542224 (Version 1)
Quarter: 2022Q1

REPORT INFORMATION
  Report Type: Spontaneous
  Country: GB (occurrence: None)
  Receive Date: 20220302
  Receipt Date: 20220302
  Transmission Date: 20220423
  Serious: Yes (Disabling)
  Sender: FDA-Public Use
  Company Number: 2022A082922

PATIENT
  Age: 73 Year
  Sex: Female
  Weight: 80 kg

DRUGS (5)
  1. DAPAGLIFLOZIN [Suspect]
     Active Substance: DAPAGLIFLOZIN
     Indication: Type 2 diabetes mellitus
     Dosage: 10
     Route: 065
     Dates: start: 20211218, end: 20220214
  2. ATENOLOL [Concomitant]
     Active Substance: ATENOLOL
     Indication: Hypertension
     Route: 065
     Dates: start: 20201109
  3. BENDROFLUMETHIAZIDE [Concomitant]
     Active Substance: BENDROFLUMETHIAZIDE
     Indication: Essential hypertension
     Route: 065
     Dates: start: 20060707
  4. CANDESARTAN [Concomitant]
     Active Substance: CANDESARTAN
     Indication: Essential hypertension
     Route: 065
     Dates: start: 20100519
  5. SIMVASTATIN [Concomitant]
     Active Substance: SIMVASTATIN
     Indication: Prophylaxis
     Route: 065
     Dates: start: 20070620

REACTIONS (2)
  - Constipation [Recovering/Resolving]
  - Thirst [Recovering/Resolving]
